FAERS Safety Report 9142707 (Version 1)
Quarter: 2013Q1

REPORT INFORMATION
  Report Type: Spontaneous
  Country: FR (occurrence: FR)
  Receive Date: 20130306
  Receipt Date: 20130306
  Transmission Date: 20140127
  Serious: Yes (Hospitalization)
  Sender: FDA-Public Use
  Company Number: FR-BRISTOL-MYERS SQUIBB COMPANY-17417858

PATIENT
  Age: 75 Year
  Sex: Female

DRUGS (5)
  1. TAXOL INJ [Suspect]
     Indication: OVARIAN CANCER
     Dates: start: 200906, end: 20091125
  2. CARBOPLATINE [Suspect]
     Indication: OVARIAN CANCER
     Dates: start: 200906, end: 20091125
  3. CAELYX [Suspect]
     Indication: OVARIAN CANCER
     Dates: start: 201101, end: 201110
  4. GEMZAR [Suspect]
     Indication: OVARIAN CANCER
     Dosage: 08AUG2012 TO 22AUG2012
     Dates: start: 201202, end: 201206
  5. OXALIPLATIN [Concomitant]
     Dates: start: 201208

REACTIONS (1)
  - Myelodysplastic syndrome [Not Recovered/Not Resolved]
